FAERS Safety Report 23039118 (Version 1)
Quarter: 2023Q4

REPORT INFORMATION
  Report Type: Spontaneous
  Country: US (occurrence: US)
  Receive Date: 20231006
  Receipt Date: 20231006
  Transmission Date: 20240109
  Serious: No
  Sender: FDA-Public Use
  Company Number: US-GSKCCFUS-Case-01815556_AE-101596

PATIENT
  Sex: Female

DRUGS (1)
  1. FLOVENT HFA [Suspect]
     Active Substance: FLUTICASONE PROPIONATE
     Indication: Product used for unknown indication
     Dosage: 2 PUFF(S), BID
     Route: 055
     Dates: start: 20220301

REACTIONS (5)
  - Ageusia [Recovered/Resolved]
  - Anosmia [Recovered/Resolved]
  - Polyp [Recovered/Resolved]
  - Nasal septum deviation [Recovered/Resolved]
  - Inappropriate schedule of product administration [Unknown]
